FAERS Safety Report 9872195 (Version 2)
Quarter: 2014Q1

REPORT INFORMATION
  Report Type: Spontaneous
  Country: US (occurrence: US)
  Receive Date: 20140205
  Receipt Date: 20140205
  Transmission Date: 20141002
  Serious: No
  Sender: FDA-Public Use
  Company Number: US-ALLERGAN-1306347US

PATIENT
  Age: 39 Year
  Sex: Female

DRUGS (6)
  1. BOTOX COSMETIC [Suspect]
     Indication: SKIN WRINKLING
     Dosage: 53 UNITS, SINGLE
     Route: 030
     Dates: start: 20130403
  2. BOTOX COSMETIC [Suspect]
     Indication: SKIN WRINKLING
  3. BOTOX COSMETIC [Suspect]
     Indication: SKIN WRINKLING
  4. ASICOL [Concomitant]
     Indication: CROHN^S DISEASE
     Dosage: UNK
  5. CELEXA                             /00582602/ [Concomitant]
     Indication: STRESS
     Dosage: UNK
  6. BIRTH CONTROL PILL NOS [Concomitant]
     Indication: CONTRACEPTION
     Dosage: UNK

REACTIONS (10)
  - Gait disturbance [Unknown]
  - Photosensitivity reaction [Recovering/Resolving]
  - Eye swelling [Recovering/Resolving]
  - Pain [Recovered/Resolved]
  - Pain [Recovered/Resolved]
  - Swelling [Recovered/Resolved]
  - Erythema [Recovered/Resolved]
  - Urticaria [Recovered/Resolved]
  - Injection site pruritus [Unknown]
  - Injection site pain [Unknown]
